FAERS Safety Report 11403045 (Version 1)
Quarter: 2015Q3

REPORT INFORMATION
  Report Type: Spontaneous
  Country: US (occurrence: US)
  Receive Date: 20150821
  Receipt Date: 20150821
  Transmission Date: 20151125
  Serious: No
  Sender: FDA-Public Use
  Company Number: US-ROCHE-1108851

PATIENT
  Sex: Female

DRUGS (4)
  1. PNEUMOVAX 23 [Suspect]
     Active Substance: PNEUMOCOCCAL VACCINE, POLYVALENT 23
     Indication: PRODUCT USED FOR UNKNOWN INDICATION
     Route: 065
  2. COPEGUS [Suspect]
     Active Substance: RIBAVIRIN
     Indication: HEPATITIS C
     Route: 058
  3. PEGASYS [Suspect]
     Active Substance: PEGINTERFERON ALFA-2A
     Indication: HEPATITIS C
     Route: 058
  4. PROCRIT [Concomitant]
     Active Substance: ERYTHROPOIETIN

REACTIONS (19)
  - Nausea [Unknown]
  - Dry mouth [Not Recovered/Not Resolved]
  - Feeling abnormal [Not Recovered/Not Resolved]
  - Alopecia [Unknown]
  - Inflammation [Unknown]
  - Anaemia [Not Recovered/Not Resolved]
  - Mitochondrial toxicity [Unknown]
  - Vaccination failure [Unknown]
  - Blood immunoglobulin M decreased [Not Recovered/Not Resolved]
  - Stomatitis [Not Recovered/Not Resolved]
  - Hypogammaglobulinaemia [Unknown]
  - Chronic fatigue syndrome [Not Recovered/Not Resolved]
  - Blood immunoglobulin G decreased [Not Recovered/Not Resolved]
  - Candida infection [Unknown]
  - Gingival disorder [Not Recovered/Not Resolved]
  - Hypersensitivity [Unknown]
  - Dental cosmetic procedure [Not Recovered/Not Resolved]
  - Asthenia [Unknown]
  - Skin test positive [Not Recovered/Not Resolved]
